FAERS Safety Report 5394549-5 (Version None)
Quarter: 2007Q3

REPORT INFORMATION
  Report Type: 
  Country: None (occurrence: None)
  Receive Date: 20070723
  Receipt Date: 20070713
  Transmission Date: 20080115
  Serious: Yes (Death)
  Sender: FDA-Public Use
  Company Number: US-ELI_LILLY_AND_COMPANY-US200704003077

PATIENT
  Age: 73 Year
  Sex: Male
  Weight: 70.294 kg

DRUGS (39)
  1. GLYBURIDE [Concomitant]
     Dosage: 5 MG, EACH MORNING
  2. GLYBURIDE [Concomitant]
     Dosage: 4 MG, EACH EVENING
  3. GLYBURIDE [Concomitant]
     Dosage: 5 MG, 2/D
  4. PHENERGAN HCL [Concomitant]
     Dosage: 25 MG, EVERY 4 HRS
  5. PROVIGIL [Concomitant]
     Dosage: 200 MG, EACH MORNING
  6. TIMOLOL MALEATE [Concomitant]
     Dosage: 0.5 %, UNK
     Route: 047
  7. PROSCAR [Concomitant]
     Indication: MICTURITION DISORDER
     Dosage: 5 MG, UNK
  8. REMINYL [Concomitant]
     Dosage: 8 MG, UNK
     Dates: end: 20031109
  9. REMINYL [Concomitant]
     Dosage: 12 MG, UNK
     Dates: start: 20030912
  10. REMINYL [Concomitant]
     Dosage: 12 MG, 2/D
  11. NAMENDA [Concomitant]
     Dosage: 10 MG, EACH MORNING
  12. NAMENDA [Concomitant]
     Dosage: 10 MG, EACH EVENING
  13. ATACAND [Concomitant]
     Dosage: 32 MG, DAILY (1/D)
  14. NORVASC [Concomitant]
     Dosage: 5 MG, UNK
  15. FLOMAX [Concomitant]
     Dosage: 0.4 MG, UNK
  16. TOPROL-XL [Concomitant]
     Dosage: 50 MG, EACH EVENING
  17. TRAVATAN [Concomitant]
     Dosage: UNK, EACH EVENING
     Route: 047
  18. KENALOG [Concomitant]
     Dosage: UNK MG, UNK
  19. KENALOG [Concomitant]
     Dates: start: 20010523
  20. KENALOG [Concomitant]
     Dates: start: 20010703
  21. KENALOG [Concomitant]
     Dates: start: 20020523
  22. KENALOG [Concomitant]
     Dates: start: 20020611
  23. KENALOG [Concomitant]
     Dates: start: 20030711
  24. PANLOR DC [Concomitant]
     Dosage: UNK MG, AS NEEDED
  25. CLONIDINE [Concomitant]
     Dosage: 0.1 MG, AS NEEDED
  26. EXELON [Concomitant]
     Dosage: 6 MG, 2/D
  27. ZOFRAN [Concomitant]
     Dosage: 4 MG, 2/D
     Dates: start: 20040919
  28. ZOFRAN [Concomitant]
     Dosage: 8 MG, 2/D
  29. LASIX [Concomitant]
     Dosage: 20 MG, DAILY (1/D)
  30. POTASSIUM CHLORIDE [Concomitant]
     Dosage: 20 MEQ, DAILY (1/D)
  31. BEXTRA [Concomitant]
     Dosage: 10 MG, DAILY (1/D)
  32. ECOTRIN [Concomitant]
     Dosage: 81 MG, DAILY (1/D)
  33. MINOXIDIL [Concomitant]
     Dosage: 5 MG, DAILY (1/D)
  34. REMERON [Concomitant]
     Dosage: 15 MG, EACH EVENING
  35. OTHER ANTIINFLAMMATORY AGENTS IN COMB. [Concomitant]
     Dates: start: 20050101
  36. CYMBALTA [Suspect]
     Indication: PAIN
     Dosage: 60 MG, DAILY (1/D)
     Route: 048
  37. CYMBALTA [Suspect]
     Dosage: 60 MG, UNK
     Dates: start: 20050701
  38. ACTOS [Concomitant]
     Indication: DIABETES MELLITUS
     Dosage: 30 MG, DAILY (1/D)
  39. ZOCOR [Concomitant]
     Indication: BLOOD CHOLESTEROL INCREASED
     Dosage: 80 MG, EACH EVENING

REACTIONS (2)
  - APLASTIC ANAEMIA [None]
  - HAEMORRHAGIC DISORDER [None]
